FAERS Safety Report 6698158-7 (Version None)
Quarter: 2010Q2

REPORT INFORMATION
  Report Type: 
  Country: None (occurrence: None)
  Receive Date: 20100426
  Receipt Date: 20100426
  Transmission Date: 20101027
  Serious: Yes (Hospitalization)
  Sender: FDA-Public Use
  Company Number: None

PATIENT
  Age: 80 Year
  Sex: Male
  Weight: 88 kg

DRUGS (17)
  1. CHLORPROMAZINE [Suspect]
  2. ASPIRIN [Concomitant]
  3. INSULIN GLARGINE [Concomitant]
  4. PANTOPROZOLE [Concomitant]
  5. SIMVASTATIN [Concomitant]
  6. OXYCODONE AND ACETAMINOPHEN [Concomitant]
  7. HYDROMORPHONE HCL [Concomitant]
  8. FAMOTIDINE [Concomitant]
  9. BISOPROLOL FUMARATE AND HYDROCHLOROTHIAZIDE [Concomitant]
  10. WARFARIN SODIUM [Concomitant]
  11. HYDROMORPHONE HCL [Concomitant]
  12. LORAZEPAM [Concomitant]
  13. NALOXONE [Concomitant]
  14. WARFARIN SODIUM [Concomitant]
  15. FLUMAZENIL [Concomitant]
  16. FLUMAZENIL [Concomitant]
  17. LORAZEPAM [Concomitant]

REACTIONS (3)
  - DEPRESSED LEVEL OF CONSCIOUSNESS [None]
  - EATING DISORDER [None]
  - SOMNOLENCE [None]
